FAERS Safety Report 13044697 (Version 1)
Quarter: 2016Q4

REPORT INFORMATION
  Report Type: Spontaneous
  Country: US (occurrence: US)
  Receive Date: 20161220
  Receipt Date: 20161220
  Transmission Date: 20170207
  Serious: No
  Sender: FDA-Public Use
  Company Number: US-ROCHE-1036289

PATIENT
  Sex: Male

DRUGS (2)
  1. ZELBORAF [Suspect]
     Active Substance: VEMURAFENIB
     Route: 048
     Dates: start: 20111121
  2. ZELBORAF [Suspect]
     Active Substance: VEMURAFENIB
     Indication: METASTATIC MALIGNANT MELANOMA
     Route: 048
     Dates: start: 20111104

REACTIONS (3)
  - White blood cell count decreased [Not Recovered/Not Resolved]
  - Lymphopenia [Not Recovered/Not Resolved]
  - Neutropenia [Not Recovered/Not Resolved]
